FAERS Safety Report 11329304 (Version 1)
Quarter: 2015Q3

REPORT INFORMATION
  Report Type: Spontaneous
  Country: BR (occurrence: BR)
  Receive Date: 20150803
  Receipt Date: 20150803
  Transmission Date: 20151125
  Serious: Yes (Hospitalization)
  Sender: FDA-Public Use
  Company Number: BR-AXELLIA-000851

PATIENT
  Age: 55 Year
  Sex: Male

DRUGS (9)
  1. FUROSEMIDE. [Concomitant]
     Active Substance: FUROSEMIDE
  2. PREDNISONE. [Concomitant]
     Active Substance: PREDNISONE
  3. INSULIN HUMAN [Concomitant]
     Active Substance: INSULIN HUMAN
  4. TACROLIMUS. [Concomitant]
     Active Substance: TACROLIMUS
  5. POLYMYXIN B. [Suspect]
     Active Substance: POLYMYXIN B
     Indication: PRODUCT USED FOR UNKNOWN INDICATION
     Dosage: 795 000 IU EVERY 48 HOURS AND MAINTAINED FOR 10 DAYS
  6. FLUCONAZOLE. [Concomitant]
     Active Substance: FLUCONAZOLE
  7. OMEPRAZOLE. [Concomitant]
     Active Substance: OMEPRAZOLE
  8. RISPERIDONE. [Concomitant]
     Active Substance: RISPERIDONE
  9. MEROPENEM. [Concomitant]
     Active Substance: MEROPENEM

REACTIONS (1)
  - Skin hyperpigmentation [Unknown]
